FAERS Safety Report 17365327 (Version 1)
Quarter: 2020Q1

REPORT INFORMATION
  Report Type: Spontaneous
  Country: GR (occurrence: GR)
  Receive Date: 20200204
  Receipt Date: 20200204
  Transmission Date: 20200409
  Serious: Yes (Death, Hospitalization, Other)
  Sender: FDA-Public Use
  Company Number: GR-ALVOGEN-2020-ALVOGEN-105351

PATIENT
  Age: 57 Year
  Sex: Female

DRUGS (2)
  1. CLINDAMYCIN. [Suspect]
     Active Substance: CLINDAMYCIN
     Indication: EMPHYSEMATOUS PYELONEPHRITIS
     Dosage: 1.8 G/DAY IV DIVIDED Q8HR
  2. CEFTRIAXONE. [Suspect]
     Active Substance: CEFTRIAXONE
     Indication: EMPHYSEMATOUS PYELONEPHRITIS
     Dosage: 2 G QDAY?INTRAVENOUSLY (IV)

REACTIONS (3)
  - Drug ineffective [Fatal]
  - Septic shock [Fatal]
  - Multiple organ dysfunction syndrome [Fatal]
